FAERS Safety Report 15169345 (Version 1)
Quarter: 2018Q3

REPORT INFORMATION
  Report Type: Spontaneous
  Country: JP (occurrence: JP)
  Receive Date: 20180720
  Receipt Date: 20180720
  Transmission Date: 20181010
  Serious: Yes (Hospitalization)
  Sender: FDA-Public Use
  Company Number: JP-TEVA-2018-JP-929624

PATIENT
  Age: 73 Year
  Sex: Male

DRUGS (10)
  1. MINOCYCLINE [Concomitant]
     Active Substance: MINOCYCLINE\MINOCYCLINE HYDROCHLORIDE
     Dosage: 200 MILLIGRAM DAILY;
     Route: 065
  2. AZOSEMIDE [Concomitant]
     Active Substance: AZOSEMIDE
     Dosage: 30 MILLIGRAM DAILY;
     Route: 065
  3. QUETIAPINE. [Suspect]
     Active Substance: QUETIAPINE
     Indication: DELIRIUM
     Dosage: 50 MILLIGRAM DAILY; STARTED IN POST?OPERATIVE DAY (POD) 30; DOSE INCREASED TO 150MG/DAY ON POD 35
     Route: 065
  4. TOLVAPTAN [Interacting]
     Active Substance: TOLVAPTAN
     Indication: ACUTE KIDNEY INJURY
     Dosage: 7.5 MILLIGRAM DAILY; INITIATED ON POD 43
     Route: 065
  5. BENIDIPINE [Interacting]
     Active Substance: BENIDIPINE
     Dosage: 2 MILLIGRAM DAILY;
     Route: 065
  6. FUROSEMIDE. [Concomitant]
     Active Substance: FUROSEMIDE
     Dosage: INTRAVENOUS CONTINUOUS DRIP INFUSION; INITIATED SOON AFTER ADMISSION
     Route: 041
  7. CEFEPIME [Concomitant]
     Active Substance: CEFEPIME HYDROCHLORIDE
     Indication: ENTEROCOCCAL INFECTION
     Dosage: 2?4G/DAY; ADMINISTERED FROM POD 18 TO POD 37
     Route: 065
  8. CARPERITIDE [Concomitant]
     Active Substance: CARPERITIDE
     Route: 065
  9. QUETIAPINE. [Suspect]
     Active Substance: QUETIAPINE
     Dosage: 150 MILLIGRAM DAILY;
     Route: 065
  10. DOBUTAMINE [Concomitant]
     Active Substance: DOBUTAMINE\DOBUTAMINE HYDROCHLORIDE
     Dosage: INTRAVENOUS CONTINUOUS DRIP INFUSION; INITIATED SOON AFTER ADMISSION
     Route: 041

REACTIONS (5)
  - Renal tubular necrosis [Recovered/Resolved]
  - Weight increased [Unknown]
  - Acute kidney injury [Recovered/Resolved]
  - Nephropathy toxic [Recovered/Resolved]
  - Drug interaction [Recovered/Resolved]
